FAERS Safety Report 8802894 (Version 1)
Quarter: 2012Q4

REPORT INFORMATION
  Report Type: 
  Country: BR (occurrence: BR)
  Receive Date: 20120924
  Receipt Date: 20120924
  Transmission Date: 20130627
  Serious: Yes (Hospitalization)
  Sender: FDA-Public Use
  Company Number: BR-ABBOTT-12P-020-0975733-00

PATIENT
  Age: 44 Year
  Sex: Male

DRUGS (2)
  1. ATACAND [Suspect]
     Indication: PRODUCT USED FOR UNKNOWN INDICATION
     Route: 048
     Dates: start: 2012, end: 2012
  2. ATACAND [Suspect]
     Route: 048
     Dates: start: 2012

REACTIONS (4)
  - Empyema [Unknown]
  - Pneumonia [Unknown]
  - Hypotension [Unknown]
  - Pleural effusion [Unknown]
